FAERS Safety Report 5560850-5 (Version None)
Quarter: 2007Q4

REPORT INFORMATION
  Report Type: 
  Country: None (occurrence: None)
  Receive Date: 20071215
  Receipt Date: 20071120
  Transmission Date: 20080405
  Serious: No
  Sender: FDA-Public Use
  Company Number: US-ABBOTT-07P-163-0425900-00

PATIENT
  Sex: Female
  Weight: 43.584 kg

DRUGS (3)
  1. HUMIRA [Suspect]
     Indication: CROHN'S DISEASE
     Route: 058
     Dates: start: 20071106, end: 20071106
  2. HUMIRA [Suspect]
     Route: 058
     Dates: start: 20071121, end: 20071121
  3. HUMIRA [Suspect]
     Route: 058

REACTIONS (1)
  - BRONCHITIS [None]
